FAERS Safety Report 21839043 (Version 1)
Quarter: 2023Q1

REPORT INFORMATION
  Report Type: Spontaneous
  Country: US (occurrence: None)
  Receive Date: 20230108
  Receipt Date: 20230108
  Transmission Date: 20230418
  Serious: Yes (Life-Threatening, Hospitalization)
  Sender: FDA-Public Use
  Company Number: None

PATIENT
  Age: 78 Year
  Sex: Female

DRUGS (1)
  1. METFORMIN HYDROCHLORIDE [Suspect]
     Active Substance: METFORMIN HYDROCHLORIDE
     Indication: Diabetes mellitus
     Dosage: FREQUENCY : TWICE A DAY;?
     Route: 048
     Dates: start: 20090720, end: 20221023

REACTIONS (6)
  - Bladder catheterisation [None]
  - Device leakage [None]
  - Urinary retention [None]
  - Lactic acidosis [None]
  - White blood cell count increased [None]
  - Urinary tract infection [None]

NARRATIVE: CASE EVENT DATE: 20221023
